FAERS Safety Report 21867665 (Version 1)
Quarter: 2023Q1

REPORT INFORMATION
  Report Type: Report from Study
  Country: US (occurrence: US)
  Receive Date: 20230116
  Receipt Date: 20230116
  Transmission Date: 20230417
  Serious: No
  Sender: FDA-Public Use
  Company Number: US-ABBVIE-4237245

PATIENT
  Sex: Female

DRUGS (4)
  1. HUMIRA [Suspect]
     Active Substance: ADALIMUMAB
     Indication: Psoriasis
     Route: 058
  2. Pfizer/BioNTech [Concomitant]
     Indication: COVID-19 immunisation
     Dosage: FIRST DOSE, ADMINISTERED ONCE
     Route: 030
     Dates: start: 20210324, end: 20210324
  3. Pfizer/BioNTech [Concomitant]
     Indication: COVID-19 immunisation
     Dosage: SECOND DOSE, ADMINISTERED ONCE
     Route: 030
     Dates: start: 20210430, end: 20210430
  4. Pfizer/BioNTech [Concomitant]
     Indication: COVID-19 immunisation
     Dosage: THIRD DOSE/BOOSTER, ADMINISTERED ONCE
     Route: 030
     Dates: start: 20211119, end: 20211119

REACTIONS (1)
  - SARS-CoV-2 test positive [Recovered/Resolved]
